FAERS Safety Report 24564132 (Version 1)
Quarter: 2024Q4

REPORT INFORMATION
  Report Type: Report from Study
  Country: BR (occurrence: BR)
  Receive Date: 20241030
  Receipt Date: 20241030
  Transmission Date: 20250115
  Serious: Yes (Other)
  Sender: TAKEDA
  Company Number: BR-TAKEDA-2024TUS108762

PATIENT
  Age: 6 Year
  Sex: Male

DRUGS (2)
  1. HUMAN IMMUNOGLOBULIN G\HYALURONIDASE RECOMBINANT HUMAN [Suspect]
     Active Substance: HUMAN IMMUNOGLOBULIN G\HYALURONIDASE (HUMAN RECOMBINANT)
     Indication: Primary immunodeficiency syndrome
     Dosage: 5 GRAM, Q4WEEKS
     Route: 058
  2. PNEUMOCOCCAL VACCINE POLYVALENT NOS [Concomitant]
     Active Substance: PNEUMOCOCCAL VACCINE, POLYVALENT
     Dosage: UNK

REACTIONS (9)
  - Pneumonia [Unknown]
  - Selective IgG subclass deficiency [Unknown]
  - Haemophilus infection [Unknown]
  - Ear infection [Unknown]
  - Upper respiratory tract infection [Unknown]
  - Sinusitis [Unknown]
  - Chronic sinusitis [Unknown]
  - Infection [Not Recovered/Not Resolved]
  - Blood immunoglobulin G abnormal [Unknown]

NARRATIVE: CASE EVENT DATE: 20230101
